FAERS Safety Report 23216983 (Version 2)
Quarter: 2024Q2

REPORT INFORMATION
  Report Type: Other
  Country: IT (occurrence: IT)
  Receive Date: 20231122
  Receipt Date: 20240410
  Transmission Date: 20240715
  Serious: Yes (Other)
  Sender: FDA-Public Use
  Company Number: None

PATIENT
  Age: 64 Year
  Sex: Male
  Weight: 70 kg

DRUGS (4)
  1. AVASTIN [Suspect]
     Active Substance: BEVACIZUMAB
     Indication: Age-related macular degeneration
     Route: 065
     Dates: start: 20230510, end: 20230510
  2. AVASTIN [Suspect]
     Active Substance: BEVACIZUMAB
     Route: 065
     Dates: start: 20230308, end: 20230308
  3. AVASTIN [Suspect]
     Active Substance: BEVACIZUMAB
     Dosage: FIRST CYCLE
     Route: 065
     Dates: start: 20230208, end: 20230208
  4. MATEVER [Concomitant]
     Indication: Seizure prophylaxis

REACTIONS (4)
  - Detachment of retinal pigment epithelium [Not Recovered/Not Resolved]
  - Subretinal fluid [Not Recovered/Not Resolved]
  - Visual acuity reduced [Not Recovered/Not Resolved]
  - Therapeutic product effect decreased [Not Recovered/Not Resolved]

NARRATIVE: CASE EVENT DATE: 20230505
